FAERS Safety Report 4666757-X (Version None)
Quarter: 2005Q2

REPORT INFORMATION
  Report Type: 
  Country: None (occurrence: None)
  Receive Date: 20050518
  Receipt Date: 20040407
  Transmission Date: 20051028
  Serious: Yes (Other)
  Sender: FDA-Public Use
  Company Number: 2003190608US

PATIENT
  Age: 27 Year
  Sex: Female

DRUGS (5)
  1. DEPO-PROVERA [Suspect]
     Indication: CONTRACEPTION
     Dosage: FIRST INJECTION; EVERY 3 MONTHS
     Dates: start: 20000101, end: 20000101
  2. DEPO-PROVERA [Suspect]
     Indication: CONTRACEPTION
     Dosage: FIRST INJECTION; EVERY 3 MONTHS
     Dates: start: 20030201, end: 20030201
  3. DEPO-PROVERA [Suspect]
     Indication: CONTRACEPTION
     Dosage: FIRST INJECTION; EVERY 3 MONTHS
     Dates: start: 20030501, end: 20030501
  4. DEPO-PROVERA [Suspect]
     Indication: CONTRACEPTION
     Dosage: EVERY 3 MONTHS;  LAST INJECTION
     Dates: start: 20030721, end: 20030721
  5. DEPO-PROVERA [Suspect]
     Indication: CONTRACEPTION
     Dosage: EVERY 3 MONTHS;  LAST INJECTION
     Dates: start: 20031020, end: 20031020

REACTIONS (1)
  - UNINTENDED PREGNANCY [None]
